FAERS Safety Report 21326212 (Version 3)
Quarter: 2023Q2

REPORT INFORMATION
  Report Type: Spontaneous
  Country: JP (occurrence: JP)
  Receive Date: 20220913
  Receipt Date: 20230424
  Transmission Date: 20230721
  Serious: Yes (Death, Hospitalization, Other)
  Sender: FDA-Public Use
  Company Number: JP-ONO-2022JP021331

PATIENT
  Age: 81 Year
  Sex: Male
  Weight: 63.1 kg

DRUGS (5)
  1. OPDIVO [Suspect]
     Active Substance: NIVOLUMAB
     Indication: Colon cancer
     Dosage: 240 MG, Q2W
     Route: 041
     Dates: start: 20210318, end: 20220331
  2. OPDIVO [Suspect]
     Active Substance: NIVOLUMAB
     Dosage: 240 MG, Q2W
     Route: 041
     Dates: start: 20220414, end: 20220609
  3. NIFEDIPINE [Concomitant]
     Active Substance: NIFEDIPINE
     Route: 048
     Dates: start: 20220728
  4. NIFEDIPINE [Concomitant]
     Active Substance: NIFEDIPINE
     Route: 048
     Dates: start: 20220728
  5. VALSARTAN [Concomitant]
     Active Substance: VALSARTAN
     Route: 048
     Dates: end: 20220728

REACTIONS (7)
  - Immune-mediated enterocolitis [Fatal]
  - Septic shock [Fatal]
  - Pneumonia [Fatal]
  - Cytomegalovirus infection [Unknown]
  - Anaemia [Unknown]
  - Malnutrition [Unknown]
  - Escherichia sepsis [Fatal]

NARRATIVE: CASE EVENT DATE: 20220609
